FAERS Safety Report 10149950 (Version 2)
Quarter: 2019Q4

REPORT INFORMATION
  Report Type: Spontaneous
  Country: FR (occurrence: FR)
  Receive Date: 20140502
  Receipt Date: 20191001
  Transmission Date: 20200122
  Serious: Yes (Other)
  Sender: FDA-Public Use
  Company Number: FR-UCBSA-119275

PATIENT
  Age: 70 Year
  Sex: Female

DRUGS (14)
  1. SPECIAFOLDINE [Concomitant]
     Active Substance: FOLIC ACID
     Dosage: 5 MG, 1 TAB PER WEEK
     Dates: start: 20140211
  2. LYRICA [Concomitant]
     Active Substance: PREGABALIN
     Dosage: 50 MG 3/DAY
     Dates: start: 2012
  3. ZOVIRAX [Concomitant]
     Active Substance: ACYCLOVIR
     Indication: PRODUCT USED FOR UNKNOWN INDICATION
  4. PANTOPRAZOLE [Concomitant]
     Active Substance: PANTOPRAZOLE
     Indication: PRODUCT USED FOR UNKNOWN INDICATION
  5. IMETH [Concomitant]
     Active Substance: METHOTREXATE SODIUM
     Dosage: 10 MG, WEEKLY (QW)
     Dates: start: 1998, end: 2004
  6. SPECIAFOLDINE [Concomitant]
     Active Substance: FOLIC ACID
     Dosage: 5 MG, 1 TAB PER WEEK
     Dates: start: 201303, end: 201312
  7. STILNOX [Concomitant]
     Active Substance: ZOLPIDEM TARTRATE
     Indication: PRODUCT USED FOR UNKNOWN INDICATION
  8. CIMZIA [Suspect]
     Active Substance: CERTOLIZUMAB PEGOL
     Indication: RHEUMATOID ARTHRITIS
     Dosage: 1 DF, EV 15 DAYS
     Route: 058
     Dates: start: 20130318, end: 20140211
  9. IMETH [Concomitant]
     Active Substance: METHOTREXATE SODIUM
     Dosage: 10 MG, 1 INJECTION PER WEEK
     Dates: start: 20140211
  10. ZELITREX [Concomitant]
     Active Substance: VALACYCLOVIR HYDROCHLORIDE
     Dosage: 500 MG 2/DAY
     Dates: start: 2012
  11. DAFALGAN [Concomitant]
     Active Substance: ACETAMINOPHEN
  12. IMETH [Concomitant]
     Active Substance: METHOTREXATE SODIUM
     Dosage: 10 MG, 1 INJECTION PER WEEK
     Dates: start: 201303, end: 201312
  13. SPECIAFOLDINE [Concomitant]
     Active Substance: FOLIC ACID
     Dosage: 5 MG, WEEKLY (QW)
     Dates: start: 1998, end: 2004
  14. INIPOMP [Concomitant]
     Active Substance: PANTOPRAZOLE SODIUM
     Dosage: 20 MG, ONCE DAILY (QD)
     Dates: start: 2012

REACTIONS (1)
  - Hypersensitivity vasculitis [Recovered/Resolved]

NARRATIVE: CASE EVENT DATE: 20140130
